FAERS Safety Report 9931650 (Version 1)
Quarter: 2014Q1

REPORT INFORMATION
  Report Type: Spontaneous
  Country: US (occurrence: None)
  Receive Date: 20140227
  Receipt Date: 20140227
  Transmission Date: 20141002
  Serious: Yes (Other)
  Sender: FDA-Public Use
  Company Number: None

PATIENT
  Age: 55 Year
  Sex: Female
  Weight: 77.11 kg

DRUGS (4)
  1. ATORVASTATIN LIPITOR [Suspect]
     Indication: LOW DENSITY LIPOPROTEIN INCREASED
     Route: 048
     Dates: start: 20130820, end: 20130926
  2. BACLOFEN [Concomitant]
  3. LISINOPRIL [Concomitant]
  4. MULTIPLE VITAMIN [Concomitant]

REACTIONS (6)
  - Arthropathy [None]
  - Abasia [None]
  - Muscle tightness [None]
  - Pain in extremity [None]
  - Arthritis [None]
  - Quality of life decreased [None]
